FAERS Safety Report 5223032-2 (Version None)
Quarter: 2007Q1

REPORT INFORMATION
  Report Type: 
  Country: None (occurrence: None)
  Receive Date: 20070129
  Receipt Date: 20070117
  Transmission Date: 20070707
  Serious: Yes (Death)
  Sender: FDA-Public Use
  Company Number: NL-PFIZER INC-2007003352

PATIENT
  Sex: Female

DRUGS (8)
  1. LYRICA [Suspect]
     Indication: FACIAL NEURALGIA
     Route: 048
     Dates: start: 20061221, end: 20070101
  2. CARBAMAZEPINE [Suspect]
  3. AMITRIPTYLINE HCL [Concomitant]
  4. LIPITOR [Concomitant]
  5. LOSEC [Concomitant]
  6. METOCLOPRAMIDE [Concomitant]
     Dates: start: 20061201
  7. ZOLOFT [Concomitant]
  8. XALATAN [Concomitant]

REACTIONS (2)
  - ATRIOVENTRICULAR BLOCK [None]
  - NAUSEA [None]
